FAERS Safety Report 9017467 (Version 1)
Quarter: 2013Q1

REPORT INFORMATION
  Report Type: Spontaneous
  Country: JP (occurrence: JP)
  Receive Date: 20130117
  Receipt Date: 20130117
  Transmission Date: 20140127
  Serious: Yes (Hospitalization, Other)
  Sender: FDA-Public Use
  Company Number: JP-PFIZER INC-2012295208

PATIENT
  Age: 28 Year
  Sex: Female
  Weight: 74.6 kg

DRUGS (5)
  1. ZITHROMAC [Suspect]
     Indication: POSTOPERATIVE ABSCESS
     Dosage: 500 MG, 1X/DAY
     Route: 048
     Dates: start: 20121106, end: 20121108
  2. MEROPEN [Concomitant]
     Indication: POSTOPERATIVE ABSCESS
     Dosage: 0.5 G, 2X/DAY
     Route: 041
     Dates: start: 20121101, end: 20121105
  3. MODACIN [Concomitant]
     Indication: POSTOPERATIVE ABSCESS
     Dosage: 1 G, 2X/DAY
     Route: 041
     Dates: start: 20121031, end: 20121031
  4. CALONAL [Concomitant]
     Indication: PAIN
     Dosage: 400 MG, 3X/DAY
     Route: 048
     Dates: start: 20121027, end: 20121108
  5. HALOSPOR [Concomitant]
     Indication: POST PROCEDURAL INFECTION
     Dosage: 1 G, 2X/DAY
     Route: 041
     Dates: start: 20121025, end: 20121030

REACTIONS (3)
  - Long QT syndrome [Recovered/Resolved]
  - Dilatation ventricular [Unknown]
  - Bradycardia [Unknown]
